FAERS Safety Report 15492284 (Version 1)
Quarter: 2018Q4

REPORT INFORMATION
  Report Type: Spontaneous
  Country: US (occurrence: US)
  Receive Date: 20181004
  Receipt Date: 20181004
  Transmission Date: 20190205
  Serious: Yes (Disabling, Other)
  Sender: FDA-Public Use
  Company Number: None

PATIENT
  Age: 79 Year
  Sex: Female
  Weight: 58.97 kg

DRUGS (6)
  1. MVI [Concomitant]
     Active Substance: VITAMINS
  2. ATENOLOL. [Concomitant]
     Active Substance: ATENOLOL
  3. VITAMIN D [Concomitant]
     Active Substance: CHOLECALCIFEROL
  4. OTEZLA [Suspect]
     Active Substance: APREMILAST
  5. LIPITOR [Concomitant]
     Active Substance: ATORVASTATIN CALCIUM
  6. HCTZ [Concomitant]
     Active Substance: HYDROCHLOROTHIAZIDE

REACTIONS (2)
  - Diarrhoea [None]
  - Polymyalgia rheumatica [None]

NARRATIVE: CASE EVENT DATE: 20180817
